FAERS Safety Report 6126528-4 (Version None)
Quarter: 2009Q1

REPORT INFORMATION
  Report Type: 
  Country: None (occurrence: None)
  Receive Date: 20090320
  Receipt Date: 20090309
  Transmission Date: 20090719
  Serious: Yes (Other)
  Sender: FDA-Public Use
  Company Number: JP-PFIZER INC-2009181144

PATIENT

DRUGS (1)
  1. XALATAN [Suspect]
     Indication: GLAUCOMA
     Dates: start: 20080201, end: 20090101

REACTIONS (3)
  - COLOUR BLINDNESS [None]
  - HALLUCINATION [None]
  - OPTIC NERVE DISORDER [None]
